FAERS Safety Report 5026501-3 (Version None)
Quarter: 2006Q2

REPORT INFORMATION
  Report Type: 
  Country: None (occurrence: None)
  Receive Date: 20060615
  Receipt Date: 20060605
  Transmission Date: 20061013
  Serious: Yes (Other)
  Sender: FDA-Public Use
  Company Number: PHNU2006AU02206

PATIENT
  Age: 34 Year
  Sex: Male

DRUGS (3)
  1. ABILIFY [Suspect]
  2. SERTRALINE [Concomitant]
     Indication: ANXIETY
     Dosage: 150 MG/DAY
  3. CLOZARIL [Suspect]
     Indication: SCHIZOPHRENIA
     Dosage: 650 MG/DAY
     Route: 048
     Dates: start: 19980306

REACTIONS (5)
  - DILATATION VENTRICULAR [None]
  - HALLUCINATION, AUDITORY [None]
  - PARANOIA [None]
  - PSYCHOTIC DISORDER [None]
  - VENTRICULAR DYSFUNCTION [None]
